FAERS Safety Report 7813866-X (Version None)
Quarter: 2011Q4

REPORT INFORMATION
  Report Type: 
  Country: None (occurrence: None)
  Receive Date: 20111014
  Receipt Date: 20111004
  Transmission Date: 20120403
  Serious: Yes (Other)
  Sender: FDA-Public Use
  Company Number: HU-JNJFOC-20111002080

PATIENT
  Sex: Female
  Weight: 80 kg

DRUGS (7)
  1. REMICADE [Suspect]
     Indication: RHEUMATOID ARTHRITIS
     Dosage: 80X3 MG
     Route: 042
     Dates: start: 20071218
  2. ASPIRIN [Concomitant]
     Route: 065
  3. ALL OTHER THERAPEUTIC PRODUCTS [Concomitant]
     Route: 065
  4. VITAMIN D [Concomitant]
     Dosage: 3000 NE
     Route: 065
  5. METHOTREXATE [Concomitant]
     Indication: RHEUMATOID ARTHRITIS
     Route: 065
     Dates: start: 20050101
  6. ALL OTHER THERAPEUTIC PRODUCTS [Concomitant]
     Dosage: 2 X 200MG
     Route: 065
  7. ALENDRONATE SODIUM [Concomitant]
     Indication: OSTEOPOROSIS
     Route: 065
     Dates: start: 20101101

REACTIONS (1)
  - ANTINUCLEAR ANTIBODY POSITIVE [None]
